FAERS Safety Report 11140103 (Version 2)
Quarter: 2016Q2

REPORT INFORMATION
  Report Type: Spontaneous
  Country: US (occurrence: US)
  Receive Date: 20150527
  Receipt Date: 20160523
  Transmission Date: 20160815
  Serious: No
  Sender: FDA-Public Use
  Company Number: US-ENDO PHARMACEUTICALS INC.-SPLN20140132

PATIENT
  Sex: Male
  Weight: 54.03 kg

DRUGS (1)
  1. SUPPRELIN LA [Suspect]
     Active Substance: HISTRELIN ACETATE
     Indication: PRECOCIOUS PUBERTY
     Route: 058
     Dates: start: 20141119

REACTIONS (7)
  - Rash erythematous [Recovered/Resolved]
  - Implant site discharge [Unknown]
  - Implant site pruritus [Unknown]
  - Hypersensitivity [Unknown]
  - Implant site paraesthesia [Unknown]
  - Rash [Recovered/Resolved]
  - Implant site pain [Unknown]

NARRATIVE: CASE EVENT DATE: 2014
